FAERS Safety Report 18799392 (Version 1)
Quarter: 2021Q1

REPORT INFORMATION
  Report Type: Spontaneous
  Country: US (occurrence: US)
  Receive Date: 20210128
  Receipt Date: 20210128
  Transmission Date: 20210419
  Serious: Yes (Other)
  Sender: FDA-Public Use
  Company Number: US-SA-2021SA021136

PATIENT
  Age: 30 Year
  Sex: Female

DRUGS (1)
  1. CAPRELSA [Suspect]
     Active Substance: VANDETANIB
     Indication: THYROID CANCER
     Dosage: UNK
     Route: 048
     Dates: start: 20170408

REACTIONS (2)
  - Thyroid cancer [Unknown]
  - Disease progression [Unknown]
